FAERS Safety Report 17772358 (Version 2)
Quarter: 2020Q2

REPORT INFORMATION
  Report Type: Spontaneous
  Country: PL (occurrence: PL)
  Receive Date: 20200512
  Receipt Date: 20200515
  Transmission Date: 20200714
  Serious: Yes (Hospitalization, Other)
  Sender: FDA-Public Use
  Company Number: PL-ASTRAZENECA-2020SE61859

PATIENT
  Age: 51 Year
  Sex: Female

DRUGS (9)
  1. ARIPIPRAZOLE. [Suspect]
     Active Substance: ARIPIPRAZOLE
     Indication: PSYCHOTIC DISORDER
     Route: 065
  2. QUETIAPINE. [Suspect]
     Active Substance: QUETIAPINE
     Indication: PSYCHOTIC DISORDER
     Route: 048
  3. QUETIAPINE. [Suspect]
     Active Substance: QUETIAPINE
     Indication: PSYCHOTIC DISORDER
     Route: 048
  4. LAMOTRIGINE. [Suspect]
     Active Substance: LAMOTRIGINE
     Indication: PSYCHOTIC DISORDER
     Route: 065
  5. LAMOTRIGINE. [Suspect]
     Active Substance: LAMOTRIGINE
     Indication: PSYCHOTIC DISORDER
     Route: 065
  6. LAMOTRIGINE. [Suspect]
     Active Substance: LAMOTRIGINE
     Indication: PSYCHOTIC DISORDER
     Route: 065
  7. LITHIUM. [Suspect]
     Active Substance: LITHIUM
     Route: 065
  8. ARIPIPRAZOLE. [Suspect]
     Active Substance: ARIPIPRAZOLE
     Indication: PSYCHOTIC DISORDER
     Route: 065
  9. LAMOTRIGINE. [Suspect]
     Active Substance: LAMOTRIGINE
     Indication: PSYCHOTIC DISORDER
     Route: 065

REACTIONS (1)
  - Neuroleptic malignant syndrome [Recovering/Resolving]
